FAERS Safety Report 15340214 (Version 4)
Quarter: 2018Q4

REPORT INFORMATION
  Report Type: Report from Study
  Country: NZ (occurrence: NZ)
  Receive Date: 20180831
  Receipt Date: 20181228
  Transmission Date: 20190204
  Serious: Yes (Hospitalization)
  Sender: FDA-Public Use
  Company Number: NZ-PFIZER INC-2018338877

PATIENT
  Age: 48 Year
  Sex: Female
  Weight: 79.7 kg

DRUGS (8)
  1. COTRIMOXAZOLE [Concomitant]
     Active Substance: SULFAMETHOXAZOLE\TRIMETHOPRIM
     Indication: CANDIDA INFECTION
     Dosage: UNK
     Route: 061
     Dates: start: 20180810, end: 20180830
  2. ROXITHROMYCIN [Concomitant]
     Active Substance: ROXITHROMYCIN
     Indication: COUGH
     Dosage: UNK
     Route: 048
     Dates: start: 20180802, end: 20180808
  3. XELJANZ [Suspect]
     Active Substance: TOFACITINIB CITRATE
     Indication: COLITIS ULCERATIVE
     Dosage: 10 MG, 2X/DAY (BID)
     Route: 048
     Dates: start: 20130709, end: 20180819
  4. CHLORAMPHENICOL [Concomitant]
     Active Substance: CHLORAMPHENICOL
     Indication: CONJUNCTIVITIS
     Dosage: UNK
     Route: 061
     Dates: start: 20180815, end: 20180830
  5. AUGMENTIN [Concomitant]
     Active Substance: AMOXICILLIN\CLAVULANATE POTASSIUM
     Indication: CANDIDA INFECTION
     Dosage: UNK
     Route: 048
     Dates: start: 20180810, end: 20180815
  6. AUGMENTIN [Concomitant]
     Active Substance: AMOXICILLIN\CLAVULANATE POTASSIUM
     Indication: URINARY TRACT INFECTION
  7. SALBUTAMOL [Concomitant]
     Active Substance: ALBUTEROL
     Indication: COUGH
     Dosage: UNK
     Route: 048
     Dates: start: 20180802, end: 20180808
  8. AMOXICILLIN. [Concomitant]
     Active Substance: AMOXICILLIN
     Indication: COUGH
     Dosage: UNK
     Route: 048
     Dates: start: 20180802, end: 20180808

REACTIONS (2)
  - Erythema nodosum [Recovered/Resolved]
  - Arthritis reactive [Recovered/Resolved]

NARRATIVE: CASE EVENT DATE: 20180819
